FAERS Safety Report 9402001 (Version 3)
Quarter: 2013Q3

REPORT INFORMATION
  Report Type: Spontaneous
  Country: US (occurrence: US)
  Receive Date: 20130716
  Receipt Date: 20130905
  Transmission Date: 20140515
  Serious: No
  Sender: FDA-Public Use
  Company Number: US-PFIZER INC-2013206549

PATIENT
  Sex: 0

DRUGS (5)
  1. XELJANZ [Suspect]
     Indication: RHEUMATOID ARTHRITIS
     Dosage: 5 MG, 2X/DAY
     Route: 048
     Dates: start: 201305, end: 201307
  2. XELJANZ [Suspect]
     Dosage: 5 MG, 2X/DAY
     Route: 048
     Dates: start: 20130419, end: 20130717
  3. LASIX [Concomitant]
     Indication: HYPERTENSION
     Dosage: UNK
  4. DIGOXIN [Concomitant]
     Indication: ATRIAL FIBRILLATION
     Dosage: UNK
  5. COUMADINE [Concomitant]
     Indication: ATRIAL FIBRILLATION
     Dosage: UNK

REACTIONS (3)
  - Low density lipoprotein increased [Unknown]
  - High density lipoprotein decreased [Recovered/Resolved]
  - Blood cholesterol increased [Recovered/Resolved]
